FAERS Safety Report 8280749-3 (Version None)
Quarter: 2012Q2

REPORT INFORMATION
  Report Type: 
  Country: None (occurrence: None)
  Receive Date: 20120412
  Receipt Date: 20120405
  Transmission Date: 20120825
  Serious: Yes (Hospitalization)
  Sender: FDA-Public Use
  Company Number: GB-ABBOTT-12P-167-0922256-00

PATIENT
  Age: 57 Year
  Sex: Female

DRUGS (2)
  1. HUMIRA [Suspect]
     Dosage: 80 LOADING DOSE, ONCE
  2. HUMIRA [Suspect]
     Indication: PRODUCT USED FOR UNKNOWN INDICATION
     Dosage: 160 LOADING DOSE, ONCE

REACTIONS (4)
  - CROHN'S DISEASE [None]
  - ABDOMINAL PAIN [None]
  - INTESTINAL STENOSIS [None]
  - ABDOMINAL INFECTION [None]
